FAERS Safety Report 6800721-7 (Version None)
Quarter: 2010Q2

REPORT INFORMATION
  Report Type: 
  Country: None (occurrence: None)
  Receive Date: 20100623
  Receipt Date: 20100616
  Transmission Date: 20101027
  Serious: Yes (Other)
  Sender: FDA-Public Use
  Company Number: 2010SP007924

PATIENT
  Age: 42 Year
  Sex: Female

DRUGS (11)
  1. MIRTAZAPINE [Suspect]
     Indication: DEPRESSED MOOD
     Dosage: 15 MG; QD; PO, 30 MG; QD; PO
     Route: 048
     Dates: start: 20091104, end: 20091112
  2. MIRTAZAPINE [Suspect]
     Indication: INSOMNIA
     Dosage: 15 MG; QD; PO, 30 MG; QD; PO
     Route: 048
     Dates: start: 20091104, end: 20091112
  3. MIRTAZAPINE [Suspect]
     Indication: DEPRESSED MOOD
     Dosage: 15 MG; QD; PO, 30 MG; QD; PO
     Route: 048
     Dates: start: 20091113
  4. MIRTAZAPINE [Suspect]
     Indication: INSOMNIA
     Dosage: 15 MG; QD; PO, 30 MG; QD; PO
     Route: 048
     Dates: start: 20091113
  5. TOLEDOMIN (MILNACIPRAN HYDROCHLORIDE) [Suspect]
     Indication: DEPRESSED MOOD
     Dosage: 75 MG; QD; PO, 50 MG; QD; PO
     Route: 048
     Dates: end: 20091210
  6. TOLEDOMIN (MILNACIPRAN HYDROCHLORIDE) [Suspect]
     Indication: MENTAL STATUS CHANGES
     Dosage: 75 MG; QD; PO, 50 MG; QD; PO
     Route: 048
     Dates: end: 20091210
  7. TOLEDOMIN (MILNACIPRAN HYDROCHLORIDE) [Suspect]
     Indication: DEPRESSED MOOD
     Dosage: 75 MG; QD; PO, 50 MG; QD; PO
     Route: 048
     Dates: start: 20091211
  8. TOLEDOMIN (MILNACIPRAN HYDROCHLORIDE) [Suspect]
     Indication: MENTAL STATUS CHANGES
     Dosage: 75 MG; QD; PO, 50 MG; QD; PO
     Route: 048
     Dates: start: 20091211
  9. ETIZOLAM [Concomitant]
  10. FLUNITRAZEPAM [Concomitant]
  11. VALPROATE SODIUM [Concomitant]

REACTIONS (10)
  - ANXIETY [None]
  - ARRHYTHMIA [None]
  - DRUG INTERACTION [None]
  - FATIGUE [None]
  - INSOMNIA [None]
  - MALAISE [None]
  - PARKINSON'S DISEASE [None]
  - SENSATION OF HEAVINESS [None]
  - SOMATOFORM DISORDER [None]
  - VENTRICULAR EXTRASYSTOLES [None]
